FAERS Safety Report 10097411 (Version 2)
Quarter: 2014Q2

REPORT INFORMATION
  Report Type: Spontaneous
  Country: US (occurrence: US)
  Receive Date: 20140423
  Receipt Date: 20140515
  Transmission Date: 20141212
  Serious: Yes (Hospitalization, Other)
  Sender: FDA-Public Use
  Company Number: US-BAXTER-2014BAX019067

PATIENT
  Age: 80 Year
  Sex: Male

DRUGS (1)
  1. DIANEAL LOW CALCIUM [Suspect]
     Indication: PERITONEAL DIALYSIS
     Route: 033
     Dates: start: 201211

REACTIONS (6)
  - Pulmonary oedema [Recovered/Resolved]
  - Asthenia [Recovered/Resolved]
  - Abasia [Recovered/Resolved]
  - Aphagia [Recovered/Resolved]
  - Fluid retention [Unknown]
  - Hypotension [Unknown]
